FAERS Safety Report 23433934 (Version 1)
Quarter: 2024Q1

REPORT INFORMATION
  Report Type: Spontaneous
  Country: US (occurrence: None)
  Receive Date: 20240123
  Receipt Date: 20240123
  Transmission Date: 20240410
  Serious: Yes (Hospitalization)
  Sender: FDA-Public Use
  Company Number: None

PATIENT
  Age: 61 Year
  Sex: Male
  Weight: 63.1 kg

DRUGS (7)
  1. TRASTUZUMAB-DKST [Suspect]
     Active Substance: TRASTUZUMAB-DKST
     Indication: Gastric cancer
     Dosage: OTHER FREQUENCY : EVERY 14 DAYS;?
     Route: 042
     Dates: start: 20240118, end: 20240118
  2. PEMBROLIZUMAB [Concomitant]
     Active Substance: PEMBROLIZUMAB
     Dates: start: 20240118, end: 20240118
  3. DIPHENHYDRAMINE [Concomitant]
     Active Substance: DIPHENHYDRAMINE
     Dates: start: 20240118, end: 20240118
  4. FAMOTIDINE [Concomitant]
     Active Substance: FAMOTIDINE
     Dates: start: 20240118, end: 20240118
  5. ACETAMINOPHEN [Concomitant]
     Active Substance: ACETAMINOPHEN
     Dates: start: 20240118, end: 20240118
  6. Solumedrol 125 mg [Concomitant]
     Dates: start: 20240118, end: 20240118
  7. Demerol 25 mg [Concomitant]
     Dates: start: 20240118, end: 20240118

REACTIONS (11)
  - Feeling hot [None]
  - Infusion related reaction [None]
  - Flushing [None]
  - Chest pain [None]
  - Back pain [None]
  - Paraesthesia oral [None]
  - Dysphagia [None]
  - Tachycardia [None]
  - Hypoxia [None]
  - Chills [None]
  - Blood pressure increased [None]

NARRATIVE: CASE EVENT DATE: 20240118
